FAERS Safety Report 25271212 (Version 1)
Quarter: 2025Q2

REPORT INFORMATION
  Report Type: Spontaneous
  Country: US (occurrence: US)
  Receive Date: 20250506
  Receipt Date: 20250506
  Transmission Date: 20250717
  Serious: Yes (Other)
  Sender: COOPERSURGICAL
  Company Number: US-COOPERSURGICAL, INC.-2025CPS003318

PATIENT
  Age: 32 Year
  Sex: Female
  Weight: 90.703 kg

DRUGS (1)
  1. PARAGARD T 380A [Suspect]
     Active Substance: COPPER
     Route: 015
     Dates: start: 20140403, end: 20191205

REACTIONS (9)
  - Reproductive complication associated with device [Unknown]
  - Device breakage [Recovered/Resolved]
  - Complication of device removal [Recovered/Resolved]
  - Embedded device [Recovered/Resolved]
  - Emotional distress [Recovered/Resolved]
  - Emotional disorder [Unknown]
  - Fear [Unknown]
  - Device dislocation [Recovered/Resolved]
  - Pain [Recovered/Resolved]

NARRATIVE: CASE EVENT DATE: 20191001
